FAERS Safety Report 17031021 (Version 1)
Quarter: 2019Q4

REPORT INFORMATION
  Report Type: Spontaneous
  Country: CA (occurrence: CA)
  Receive Date: 20191114
  Receipt Date: 20191114
  Transmission Date: 20200122
  Serious: Yes (Life-Threatening, Other)
  Sender: FDA-Public Use
  Company Number: CA-PFIZER INC-2019490444

PATIENT
  Age: 17 Year
  Sex: Male
  Weight: 71 kg

DRUGS (9)
  1. DOXORUBICIN HYDROCHLORIDE INJECTION [Concomitant]
     Active Substance: DOXORUBICIN HYDROCHLORIDE
     Dosage: UNK
  2. CYTARABINE. [Concomitant]
     Active Substance: CYTARABINE
     Dosage: UNK
  3. METHOTREXATE. [Concomitant]
     Active Substance: METHOTREXATE
     Dosage: UNK
  4. THIOGUANINE [Concomitant]
     Active Substance: THIOGUANINE
     Dosage: UNK
  5. MERCAPTOPURINE. [Concomitant]
     Active Substance: MERCAPTOPURINE
     Dosage: UNK
  6. VINCRISTINE SULFATE. [Suspect]
     Active Substance: VINCRISTINE SULFATE
     Indication: NON-HODGKIN^S LYMPHOMA
     Dosage: 2 MG, AS NEEDED
     Route: 042
  7. L-ASPARAGINASE [Concomitant]
     Active Substance: ASPARAGINASE
     Dosage: UNK
  8. CYCLOPHOSPHAMIDE. [Concomitant]
     Active Substance: CYCLOPHOSPHAMIDE
     Dosage: UNK
  9. DAUNOMYCIN [DAUNORUBICIN] [Concomitant]
     Active Substance: DAUNORUBICIN
     Dosage: UNK

REACTIONS (1)
  - Inappropriate antidiuretic hormone secretion [Unknown]
